FAERS Safety Report 5566406-2 (Version None)
Quarter: 2007Q4

REPORT INFORMATION
  Report Type: 
  Country: None (occurrence: None)
  Receive Date: 20071219
  Receipt Date: 20071210
  Transmission Date: 20080405
  Serious: Yes (Disabling, Other)
  Sender: FDA-Public Use
  Company Number: FR-AMGEN-US256948

PATIENT
  Sex: Female

DRUGS (4)
  1. ENBREL [Suspect]
     Indication: ANKYLOSING SPONDYLITIS
     Dosage: LYOPHILIZED / 25 MG TWICE WEEKLY
     Route: 058
     Dates: start: 20070420, end: 20071127
  2. VOLTAREN [Suspect]
     Dosage: UNKNOWN
     Route: 048
     Dates: end: 20071001
  3. DAFLON [Concomitant]
     Dosage: UNKNOWN
  4. KESTINE [Concomitant]
     Dosage: UNKNOWN

REACTIONS (9)
  - BLOOD PRESSURE SYSTOLIC DECREASED [None]
  - COLON NEOPLASM [None]
  - DRUG ADMINISTERED AT INAPPROPRIATE SITE [None]
  - GASTRITIS [None]
  - HAEMATOCHEZIA [None]
  - INJECTION SITE PAIN [None]
  - MUCOUS STOOLS [None]
  - MUSCULAR WEAKNESS [None]
  - PAIN IN EXTREMITY [None]
